FAERS Safety Report 4300127-9 (Version None)
Quarter: 2004Q1

REPORT INFORMATION
  Report Type: 
  Country: None (occurrence: None)
  Receive Date: 20040218
  Receipt Date: 20040206
  Transmission Date: 20041129
  Serious: Yes (Life-Threatening, Hospitalization)
  Sender: FDA-Public Use
  Company Number: 2004US000146

PATIENT
  Age: 24 Year
  Sex: Male
  Weight: 55 kg

DRUGS (3)
  1. PROGRAF [Suspect]
     Indication: IMMUNOSUPPRESSION
     Dosage: 6 MG, /D, ORAL
     Route: 048
     Dates: start: 20030712, end: 20040125
  2. PROGRAF [Suspect]
     Indication: IMMUNOSUPPRESSION
     Dosage: 6 MG, /D, ORAL
     Route: 048
     Dates: start: 20030912, end: 20040125
  3. MYCOPHENOLATE MOFETIL(MYCOPHENOLATE MOFETIL) [Concomitant]

REACTIONS (17)
  - ABDOMINAL PAIN [None]
  - ALANINE AMINOTRANSFERASE INCREASED [None]
  - ANAEMIA [None]
  - ASPARTATE AMINOTRANSFERASE INCREASED [None]
  - BLOOD ALKALINE PHOSPHATASE INCREASED [None]
  - BLOOD BILIRUBIN INCREASED [None]
  - BLOOD CREATININE INCREASED [None]
  - CYTOMEGALOVIRUS INFECTION [None]
  - HAEMOPTYSIS [None]
  - HISTIOCYTOSIS HAEMATOPHAGIC [None]
  - LEUKOCYTOSIS [None]
  - LEUKOPENIA [None]
  - LUNG INFILTRATION [None]
  - NAUSEA [None]
  - SERRATIA INFECTION [None]
  - THROMBOCYTOPENIA [None]
  - VOMITING [None]
